FAERS Safety Report 8111570-4 (Version None)
Quarter: 2012Q1

REPORT INFORMATION
  Report Type: 
  Country: None (occurrence: None)
  Receive Date: 20120202
  Receipt Date: 20120202
  Transmission Date: 20120608
  Serious: Yes (Hospitalization)
  Sender: FDA-Public Use
  Company Number: None

PATIENT
  Age: 86 Year
  Sex: Female

DRUGS (1)
  1. IRON SUCROSE [Suspect]
     Dosage: 042
     Dates: start: 20100627

REACTIONS (3)
  - DEPRESSED LEVEL OF CONSCIOUSNESS [None]
  - BRADYCARDIA [None]
  - DYSPNOEA [None]
